FAERS Safety Report 5413050-3 (Version None)
Quarter: 2007Q3

REPORT INFORMATION
  Report Type: 
  Country: None (occurrence: None)
  Receive Date: 20070809
  Receipt Date: 20070725
  Transmission Date: 20080115
  Serious: Yes (Death)
  Sender: FDA-Public Use
  Company Number: 2007000956

PATIENT
  Age: 59 Year
  Sex: Male

DRUGS (3)
  1. TARCEVA [Suspect]
     Indication: PANCREATIC CARCINOMA
     Dosage: 100 MG (QD), ORAL
     Route: 048
     Dates: start: 20070404
  2. GEMZAR [Concomitant]
  3. METOPROLOL TARTRATE [Concomitant]

REACTIONS (7)
  - BRADYCARDIA [None]
  - CARDIOVASCULAR DISORDER [None]
  - CONVULSION [None]
  - GASTROINTESTINAL HAEMORRHAGE [None]
  - RESPIRATORY FAILURE [None]
  - SHOCK HAEMORRHAGIC [None]
  - VENTRICULAR FIBRILLATION [None]
